FAERS Safety Report 12684852 (Version 2)
Quarter: 2016Q4

REPORT INFORMATION
  Report Type: Spontaneous
  Country: CA (occurrence: CA)
  Receive Date: 20160825
  Receipt Date: 20161019
  Transmission Date: 20170207
  Serious: Yes (Hospitalization)
  Sender: FDA-Public Use
  Company Number: CA-GLAXOSMITHKLINE-CA2016GSK122624

PATIENT
  Age: 52 Year
  Sex: Female

DRUGS (1)
  1. VOLTAREN (DICLOFENAC DIETHYLAMMONIUM SALT) [Suspect]
     Active Substance: DICLOFENAC DIETHYLAMINE
     Indication: ARTHRALGIA
     Dosage: UNK
     Route: 061
     Dates: start: 2013, end: 2013

REACTIONS (4)
  - Thermal burn [Recovering/Resolving]
  - Wound [Not Recovered/Not Resolved]
  - Localised infection [Not Recovered/Not Resolved]
  - Skin reaction [Recovering/Resolving]

NARRATIVE: CASE EVENT DATE: 2013
